FAERS Safety Report 8348197-5 (Version None)
Quarter: 2012Q2

REPORT INFORMATION
  Report Type: 
  Country: None (occurrence: None)
  Receive Date: 20120509
  Receipt Date: 20100714
  Transmission Date: 20120825
  Serious: No
  Sender: FDA-Public Use
  Company Number: US-TEVA-2010003755

PATIENT
  Sex: Female
  Weight: 59.02 kg

DRUGS (3)
  1. NUVIGIL [Suspect]
     Indication: SOMNOLENCE
     Dosage: 150 MILLIGRAM;
     Route: 048
     Dates: start: 20100101
  2. CYMBALTA [Concomitant]
     Indication: FIBROMYALGIA
     Dates: start: 20100301
  3. MULTI-VITAMINS [Concomitant]

REACTIONS (2)
  - TACHYCARDIA [None]
  - DRUG INEFFECTIVE FOR UNAPPROVED INDICATION [None]
